FAERS Safety Report 4372401-1 (Version None)
Quarter: 2004Q2

REPORT INFORMATION
  Report Type: 
  Country: None (occurrence: None)
  Receive Date: 20040603
  Receipt Date: 20040521
  Transmission Date: 20050107
  Serious: Yes (Other)
  Sender: FDA-Public Use
  Company Number: 8062

PATIENT
  Sex: Female

DRUGS (3)
  1. AMIODARONE HCL [Suspect]
  2. AMIODARONE HCL [Suspect]
     Dosage: 200 MG TID PO
     Route: 048
  3. AMIODARONE HCL [Suspect]
     Dosage: 200 MG DAILY PO
     Route: 048

REACTIONS (1)
  - ALVEOLITIS [None]
